FAERS Safety Report 7465982-2 (Version None)
Quarter: 2011Q2

REPORT INFORMATION
  Report Type: 
  Country: None (occurrence: None)
  Receive Date: 20110509
  Receipt Date: 20100518
  Transmission Date: 20111010
  Serious: No
  Sender: FDA-Public Use
  Company Number: US-ALEXION-A201000580

PATIENT

DRUGS (6)
  1. NEURONTIN [Concomitant]
     Indication: INSOMNIA
     Dosage: UNK
  2. SOLIRIS [Suspect]
     Dosage: 900 MG, Q2W
     Route: 042
     Dates: start: 20100201
  3. AMBIEN [Concomitant]
     Indication: INSOMNIA
     Dosage: UNK
  4. PRISTIQ [Concomitant]
     Indication: DEPRESSION
     Dosage: UNK
  5. SOLIRIS [Suspect]
     Indication: PAROXYSMAL NOCTURNAL HAEMOGLOBINURIA
     Dosage: 600 MG, QW
     Route: 042
     Dates: start: 20100101, end: 20100201
  6. WELLBUTRIN [Concomitant]
     Indication: DEPRESSION
     Dosage: UNK

REACTIONS (4)
  - MIGRAINE [None]
  - FATIGUE [None]
  - HAEMATURIA [None]
  - DIZZINESS [None]
